FAERS Safety Report 7359772-9 (Version None)
Quarter: 2011Q1

REPORT INFORMATION
  Report Type: 
  Country: None (occurrence: None)
  Receive Date: 20110307
  Receipt Date: 20090427
  Transmission Date: 20110831
  Serious: Yes (Death, Other)
  Sender: FDA-Public Use
  Company Number: UK-2009-00141

PATIENT
  Age: 79 Year
  Sex: Female

DRUGS (11)
  1. CLARITHROMYCIN [Suspect]
     Indication: BRONCHITIS
     Dosage: 500 MG (500 MG, 2 IN 1 D), ORAL
     Route: 048
     Dates: start: 20081224, end: 20081224
  2. BISOPROLOL [Concomitant]
  3. RAMIPRIL [Concomitant]
  4. FRUSEMIDE (FRUSEMIDE) [Concomitant]
  5. FERROUS SULFATE TAB [Concomitant]
  6. WARFARIN SODIUM [Concomitant]
  7. ZOPICLONE [Concomitant]
  8. OMEPRAZOLE [Concomitant]
  9. SIMVASTATIN [Suspect]
     Indication: MYOCARDIAL ISCHAEMIA
     Dosage: 80 MG (80 MG) ORAL
     Route: 048
     Dates: start: 20050501, end: 20090113
  10. GLYCERVL TRINITRATE [Concomitant]
  11. ISOSORBIDE 5-MONONITRATE (ISOTARD X1) [Concomitant]

REACTIONS (5)
  - CEREBROVASCULAR ACCIDENT [None]
  - DRUG INTERACTION [None]
  - SYNCOPE [None]
  - BRONCHITIS [None]
  - MYOSITIS [None]
